FAERS Safety Report 5673120-1 (Version None)
Quarter: 2008Q1

REPORT INFORMATION
  Report Type: 
  Country: None (occurrence: None)
  Receive Date: 20080319
  Receipt Date: 20080310
  Transmission Date: 20080703
  Serious: Yes (Life-Threatening)
  Sender: FDA-Public Use
  Company Number: ES-AVENTIS-200812222GDDC

PATIENT
  Age: 78 Year
  Sex: Male

DRUGS (6)
  1. TAVANIC [Suspect]
     Indication: INTERVERTEBRAL DISCITIS
     Route: 048
     Dates: start: 20080105, end: 20080116
  2. RIFAMPICIN [Suspect]
     Route: 048
     Dates: start: 20080105, end: 20080116
  3. PRAVASTATIN [Concomitant]
     Indication: HYPERLIPIDAEMIA
     Route: 048
  4. ROYEN [Concomitant]
     Indication: RENAL FAILURE CHRONIC
     Route: 048
  5. EPOETIN [Concomitant]
     Indication: RENAL FAILURE CHRONIC
     Dosage: DOSE: UNK
     Route: 042
  6. ALLOPURINOL [Concomitant]
     Indication: HYPERURICAEMIA
     Route: 048

REACTIONS (4)
  - DEPRESSED LEVEL OF CONSCIOUSNESS [None]
  - DYSARTHRIA [None]
  - ENCEPHALOPATHY [None]
  - SOMNOLENCE [None]
